FAERS Safety Report 4401180-4 (Version None)
Quarter: 2004Q3

REPORT INFORMATION
  Report Type: 
  Country: None (occurrence: None)
  Receive Date: 20040907
  Receipt Date: 20031204
  Transmission Date: 20050211
  Serious: No
  Sender: FDA-Public Use
  Company Number: US-BRISTOL-MYERS SQUIBB COMPANY-12450342

PATIENT
  Age: 62 Year
  Sex: Male
  Weight: 80 kg

DRUGS (2)
  1. COUMADIN [Suspect]
     Indication: COAGULOPATHY
     Dosage: 10 MG ALTERNATING WITH 5 MG PER DAY
     Route: 048
     Dates: start: 20031006
  2. LISINOPRIL [Concomitant]

REACTIONS (3)
  - DIARRHOEA [None]
  - FLATULENCE [None]
  - INTERNATIONAL NORMALISED RATIO DECREASED [None]
